FAERS Safety Report 18203084 (Version 2)
Quarter: 2020Q3

REPORT INFORMATION
  Report Type: Report from Study
  Country: CL (occurrence: CL)
  Receive Date: 20200827
  Receipt Date: 20200901
  Transmission Date: 20201103
  Serious: Yes (Other)
  Sender: FDA-Public Use
  Company Number: NVSC2020CL234336

PATIENT
  Age: 32 Year
  Sex: Male
  Weight: 90 kg

DRUGS (7)
  1. TASIGNA [Suspect]
     Active Substance: NILOTINIB
     Indication: CHRONIC MYELOID LEUKAEMIA
     Dosage: 200 MG, Q12H
     Route: 065
  2. TASIGNA [Suspect]
     Active Substance: NILOTINIB
     Dosage: 150 MG (150 MGX2)
     Route: 065
     Dates: start: 20200709
  3. TASIGNA [Suspect]
     Active Substance: NILOTINIB
     Dosage: 150 MG, Q12H
     Route: 048
     Dates: start: 20200818
  4. TASIGNA [Suspect]
     Active Substance: NILOTINIB
     Dosage: 150 MG (150 MGX2)
     Route: 065
     Dates: start: 20200806
  5. TASIGNA [Suspect]
     Active Substance: NILOTINIB
     Dosage: 200 MG, Q12H
     Route: 065
     Dates: start: 20150422
  6. DASATINIB. [Concomitant]
     Active Substance: DASATINIB
     Indication: ACUTE MYELOID LEUKAEMIA
     Dosage: 140 MG, QD
     Route: 065
     Dates: start: 20141231
  7. TASIGNA [Suspect]
     Active Substance: NILOTINIB
     Dosage: 150 MG (150 MGX2)
     Route: 065
     Dates: start: 20200611

REACTIONS (22)
  - Red blood cell sedimentation rate increased [Unknown]
  - Blood phosphorus increased [Unknown]
  - Blood pressure increased [Unknown]
  - Haemoglobin decreased [Unknown]
  - Painful respiration [Unknown]
  - Platelet count decreased [Unknown]
  - Pericarditis [Unknown]
  - Heart rate increased [Unknown]
  - Varicella [Unknown]
  - Pericardial effusion [Unknown]
  - Oedema [Unknown]
  - Musculoskeletal chest pain [Unknown]
  - Blast cell count increased [Unknown]
  - Immunophenotyping [Unknown]
  - Dyspnoea [Unknown]
  - Blood lactate dehydrogenase increased [Unknown]
  - Pulmonary embolism [Unknown]
  - Philadelphia chromosome positive [Unknown]
  - Cellulitis [Unknown]
  - Chest pain [Unknown]
  - Blood alkaline phosphatase increased [Unknown]
  - Pallor [Unknown]

NARRATIVE: CASE EVENT DATE: 20150126
